FAERS Safety Report 9340190 (Version 1)
Quarter: 2013Q2

REPORT INFORMATION
  Report Type: Spontaneous
  Country: ES (occurrence: None)
  Receive Date: 20130605
  Receipt Date: 20130605
  Transmission Date: 20140414
  Serious: Yes (Hospitalization)
  Sender: FDA-Public Use
  Company Number: 2013050089

PATIENT
  Age: 75 Year
  Sex: Male

DRUGS (7)
  1. DILUTOL (TORASEMIDE) [Suspect]
     Indication: HYPERTENSION
     Route: 048
     Dates: start: 2006, end: 20121010
  2. ATENOLOL (ATENOLOL) [Suspect]
     Route: 048
     Dates: start: 2006, end: 20121010
  3. ENALAPRIL [Suspect]
     Indication: HYPERTENSION
     Route: 048
     Dates: start: 2006, end: 20121010
  4. ADIRO (ACETYLSALICYCLIC ACID) [Concomitant]
  5. DIAMICRON (GLICLAZIDE) [Concomitant]
  6. ALLOPURINOL [Concomitant]
  7. HIDROFEROL (CALCIFEDIOL) [Concomitant]

REACTIONS (8)
  - Diarrhoea [None]
  - Urine output decreased [None]
  - Blood pressure decreased [None]
  - Blood creatinine increased [None]
  - Blood urea increased [None]
  - Renal impairment [None]
  - Fluid intake reduced [None]
  - Hypophagia [None]
